FAERS Safety Report 18816772 (Version 1)
Quarter: 2021Q1

REPORT INFORMATION
  Report Type: Spontaneous
  Country: UA (occurrence: UA)
  Receive Date: 20210201
  Receipt Date: 20210201
  Transmission Date: 20210419
  Serious: Yes (Death, Hospitalization, Other)
  Sender: FDA-Public Use
  Company Number: UA-JNJFOC-20210141279

PATIENT
  Age: 40 Year
  Sex: Male
  Weight: 60 kg

DRUGS (6)
  1. LINEZID [Suspect]
     Active Substance: LINEZOLID
     Indication: TUBERCULOSIS
     Route: 065
     Dates: start: 2009
  2. LINEZID [Suspect]
     Active Substance: LINEZOLID
     Route: 048
     Dates: start: 20201204, end: 20201215
  3. SIRTURO [Suspect]
     Active Substance: BEDAQUILINE FUMARATE
     Route: 048
     Dates: start: 20201204, end: 20201215
  4. DOVPRELA [Suspect]
     Active Substance: PRETOMANID
     Route: 048
     Dates: start: 20201204, end: 20201215
  5. SIRTURO [Suspect]
     Active Substance: BEDAQUILINE FUMARATE
     Indication: TUBERCULOSIS
     Dosage: 0.4/0.2
     Route: 048
     Dates: start: 2009
  6. DOVPRELA [Suspect]
     Active Substance: PRETOMANID
     Indication: TUBERCULOSIS
     Route: 065
     Dates: start: 2009

REACTIONS (6)
  - Nephrotic syndrome [Not Recovered/Not Resolved]
  - Pancreatic enzymes increased [Not Recovered/Not Resolved]
  - Cardiopulmonary failure [Fatal]
  - Proteinuria [Not Recovered/Not Resolved]
  - Pancreatitis [Not Recovered/Not Resolved]
  - Abdominal pain [Not Recovered/Not Resolved]

NARRATIVE: CASE EVENT DATE: 2009
